FAERS Safety Report 9775185 (Version 1)
Quarter: 2013Q4

REPORT INFORMATION
  Report Type: Spontaneous
  Country: US (occurrence: US)
  Receive Date: 20131220
  Receipt Date: 20131220
  Transmission Date: 20140711
  Serious: Yes (Other)
  Sender: FDA-Public Use
  Company Number: US-JNJFOC-20131209442

PATIENT
  Age: 23 Year
  Sex: Female

DRUGS (3)
  1. REMICADE [Suspect]
     Indication: COLITIS ULCERATIVE
     Route: 042
  2. LIALDA [Concomitant]
     Indication: COLITIS ULCERATIVE
     Dosage: ON IT FOR 1 AND 1/2 YEARS-2YEARS
     Route: 065
  3. NUVA-RING [Concomitant]
     Indication: CONTRACEPTION
     Dosage: THE PATIENT HAD BEEN ON IT FOR YEARS
     Route: 065

REACTIONS (4)
  - Blindness transient [Recovered/Resolved]
  - Hypoaesthesia [Recovered/Resolved]
  - Alopecia [Not Recovered/Not Resolved]
  - Malaise [Recovered/Resolved]
